FAERS Safety Report 25019377 (Version 1)
Quarter: 2025Q1

REPORT INFORMATION
  Report Type: Spontaneous
  Country: US (occurrence: US)
  Receive Date: 20250227
  Receipt Date: 20250227
  Transmission Date: 20250409
  Serious: Yes (Other)
  Sender: ORGANON
  Company Number: US-ORGANON-O2502USA001766

PATIENT
  Sex: Female

DRUGS (1)
  1. NEXPLANON [Suspect]
     Active Substance: ETONOGESTREL
     Indication: Contraception
     Route: 059
     Dates: start: 202309, end: 202312

REACTIONS (4)
  - Pregnancy with implant contraceptive [Recovered/Resolved]
  - Unintended pregnancy [Recovered/Resolved]
  - Hypomenorrhoea [Recovered/Resolved]
  - Amenorrhoea [Not Recovered/Not Resolved]

NARRATIVE: CASE EVENT DATE: 20230101
